FAERS Safety Report 5331034-0 (Version None)
Quarter: 2007Q2

REPORT INFORMATION
  Report Type: 
  Country: None (occurrence: None)
  Receive Date: 20070522
  Receipt Date: 20070517
  Transmission Date: 20071010
  Serious: Yes (Death)
  Sender: FDA-Public Use
  Company Number: A0647634A

PATIENT
  Age: 84 Year
  Sex: Female

DRUGS (4)
  1. ADVAIR DISKUS 100/50 [Suspect]
     Indication: BRONCHITIS
     Dosage: 1PUFF TWICE PER DAY
     Route: 055
     Dates: start: 20070411, end: 20070413
  2. ZITHROMAX [Concomitant]
  3. TYLENOL [Concomitant]
  4. BLOOD PRESSURE MEDICATION [Concomitant]

REACTIONS (5)
  - CHEST PAIN [None]
  - DEATH [None]
  - DYSPNOEA [None]
  - OVERDOSE [None]
  - SUFFOCATION FEELING [None]
